FAERS Safety Report 15339422 (Version 1)
Quarter: 2018Q3

REPORT INFORMATION
  Report Type: Spontaneous
  Country: JP (occurrence: JP)
  Receive Date: 20180831
  Receipt Date: 20180831
  Transmission Date: 20181010
  Serious: Yes (Other)
  Sender: FDA-Public Use
  Company Number: JP-MYLANLABS-2018M1064369

PATIENT
  Age: 71 Year
  Sex: Male

DRUGS (4)
  1. TACROLIMUS. [Suspect]
     Active Substance: TACROLIMUS
     Indication: IMMUNE-MEDIATED NECROTISING MYOPATHY
     Route: 065
  2. IMMUNOGLOBULIN                     /00025201/ [Concomitant]
     Active Substance: HUMAN IMMUNOGLOBULIN G
     Indication: IMMUNE-MEDIATED NECROTISING MYOPATHY
     Dosage: 0.4 G/KG/DAY FOR 5 DAYS A MONTH (TWO CYCLES)
     Route: 042
  3. PREDNISOLONE. [Suspect]
     Active Substance: PREDNISOLONE
     Indication: IMMUNE-MEDIATED NECROTISING MYOPATHY
     Route: 048
  4. METHYLPREDNISOLONE. [Suspect]
     Active Substance: METHYLPREDNISOLONE
     Indication: IMMUNE-MEDIATED NECROTISING MYOPATHY
     Dosage: 1 G/DAY FOR 3 DAYS A WEEK FOR TWO CYCLES
     Route: 042

REACTIONS (2)
  - Diffuse large B-cell lymphoma [Recovering/Resolving]
  - Drug ineffective [Unknown]
